FAERS Safety Report 16775163 (Version 1)
Quarter: 2019Q3

REPORT INFORMATION
  Report Type: Spontaneous
  Country: FR (occurrence: FR)
  Receive Date: 20190905
  Receipt Date: 20190905
  Transmission Date: 20191005
  Serious: Yes (Hospitalization)
  Sender: FDA-Public Use
  Company Number: FR-TEVA-2019-FR-1101386

PATIENT
  Age: 49 Year
  Sex: Male

DRUGS (2)
  1. DUROGESIC [Suspect]
     Active Substance: FENTANYL
     Dosage: 100 MICROGRAM 1 HOUR
     Route: 062
     Dates: start: 2016
  2. EFFENTORA [Suspect]
     Active Substance: FENTANYL CITRATE
     Dosage: 800 MICROGRAM 1 DAYS
     Route: 002
     Dates: start: 2016

REACTIONS (3)
  - Constipation [Recovering/Resolving]
  - Hyperaesthesia [Recovering/Resolving]
  - Drug dependence [Recovering/Resolving]

NARRATIVE: CASE EVENT DATE: 2016
